FAERS Safety Report 6362054-5 (Version None)
Quarter: 2009Q3

REPORT INFORMATION
  Report Type: 
  Country: None (occurrence: None)
  Receive Date: 20090918
  Receipt Date: 20090908
  Transmission Date: 20100115
  Serious: Yes (Disabling, Other)
  Sender: FDA-Public Use
  Company Number: PHHY2009BR38955

PATIENT
  Sex: Male

DRUGS (1)
  1. DIOVAN AMLO FIX [Suspect]
     Dosage: 160/5 MG, UNK
     Dates: start: 20090821, end: 20090828

REACTIONS (5)
  - COUGH [None]
  - DIZZINESS [None]
  - INCREASED UPPER AIRWAY SECRETION [None]
  - INFLUENZA [None]
  - TINNITUS [None]
